FAERS Safety Report 22334757 (Version 1)
Quarter: 2023Q2

REPORT INFORMATION
  Report Type: Spontaneous
  Country: US (occurrence: None)
  Receive Date: 20230517
  Receipt Date: 20230517
  Transmission Date: 20230722
  Serious: No
  Sender: FDA-Public Use
  Company Number: US-ROCHE-3125098

PATIENT
  Age: 66 Year
  Sex: Male
  Weight: 113.5 kg

DRUGS (4)
  1. ACTEMRA [Suspect]
     Active Substance: TOCILIZUMAB
     Indication: Giant cell arteritis
     Dosage: ONGOING: YES
     Route: 058
     Dates: start: 202205
  2. ACTEMRA [Suspect]
     Active Substance: TOCILIZUMAB
  3. ACTEMRA [Suspect]
     Active Substance: TOCILIZUMAB
  4. PREDNISONE [Concomitant]
     Active Substance: PREDNISONE
     Dosage: WEANING OFF ;ONGOING: YES

REACTIONS (7)
  - Underdose [Unknown]
  - Product complaint [Unknown]
  - Device issue [Unknown]
  - Needle issue [Unknown]
  - Device malfunction [Unknown]
  - Product quality issue [Unknown]
  - No adverse event [Unknown]

NARRATIVE: CASE EVENT DATE: 20220623
